FAERS Safety Report 4886276-5 (Version None)
Quarter: 2006Q1

REPORT INFORMATION
  Report Type: 
  Country: None (occurrence: None)
  Receive Date: 20060118
  Receipt Date: 20060105
  Transmission Date: 20060701
  Serious: Yes (Other)
  Sender: FDA-Public Use
  Company Number: 2006004702

PATIENT
  Sex: Male
  Weight: 86.1834 kg

DRUGS (7)
  1. VIAGRA [Suspect]
     Indication: ERECTILE DYSFUNCTION
     Dosage: ORAL
     Route: 048
  2. LIPITOR [Suspect]
     Indication: BLOOD CHOLESTEROL INCREASED
     Dates: start: 20020601
  3. ATENOLOL [Suspect]
     Indication: HYPERTENSION
     Dates: end: 20050401
  4. HYDROCHLOROTHIAZIDE [Suspect]
     Indication: BLOOD PRESSURE
     Dates: start: 20050401, end: 20050101
  5. LISINOPRIL [Suspect]
     Indication: HYPERTENSION
     Dates: start: 20020601
  6. LORAZEPAM [Concomitant]
  7. LEXAPRO [Concomitant]

REACTIONS (13)
  - ANXIETY [None]
  - ARTERIAL OCCLUSIVE DISEASE [None]
  - BLOOD CHOLESTEROL INCREASED [None]
  - CHEST PAIN [None]
  - DEPRESSION [None]
  - DRUG HYPERSENSITIVITY [None]
  - DRUG INEFFECTIVE [None]
  - HEART RATE DECREASED [None]
  - HYPERHIDROSIS [None]
  - LIBIDO DECREASED [None]
  - RASH [None]
  - STRESS [None]
  - THROMBOSIS [None]
